FAERS Safety Report 9148448 (Version 2)
Quarter: 2013Q2

REPORT INFORMATION
  Report Type: Report from Study
  Country: AU (occurrence: AU)
  Receive Date: 20130308
  Receipt Date: 20130430
  Transmission Date: 20140414
  Serious: Yes (Hospitalization, Other)
  Sender: FDA-Public Use
  Company Number: PHHY2013AU022214

PATIENT
  Age: 71 Year
  Sex: Male

DRUGS (3)
  1. GLIVEC [Suspect]
     Indication: CHRONIC MYELOID LEUKAEMIA
     Dosage: 600 MG, UNK
     Route: 048
     Dates: start: 20020801, end: 20121114
  2. NEXIAM [Concomitant]
     Dosage: UNK UKN, UNK
  3. MICARDIS [Concomitant]

REACTIONS (4)
  - Squamous cell carcinoma [Recovering/Resolving]
  - Second primary malignancy [Recovering/Resolving]
  - Lymphadenopathy [Recovering/Resolving]
  - Dermal cyst [Recovering/Resolving]
